FAERS Safety Report 25443857 (Version 2)
Quarter: 2025Q3

REPORT INFORMATION
  Report Type: Report from Study
  Country: BR (occurrence: BR)
  Receive Date: 20250617
  Receipt Date: 20250918
  Transmission Date: 20251021
  Serious: Yes (Hospitalization)
  Sender: TAKEDA
  Company Number: BR-TAKEDA-2024TUS088820

PATIENT
  Age: 67 Year
  Sex: Male

DRUGS (3)
  1. VEDOLIZUMAB [Suspect]
     Active Substance: VEDOLIZUMAB
     Indication: Colitis ulcerative
  2. BRINTELLIX [Concomitant]
     Active Substance: VORTIOXETINE HYDROBROMIDE
     Indication: Affective disorder
  3. Clob x [Concomitant]
     Route: 061

REACTIONS (13)
  - Orchitis [Unknown]
  - Urticaria [Not Recovered/Not Resolved]
  - Depression [Unknown]
  - Product availability issue [Unknown]
  - Inappropriate schedule of product administration [Unknown]
  - Tension [Unknown]
  - Anxiety [Unknown]
  - Abdominal pain upper [Unknown]
  - Anger [Unknown]
  - Rectal tenesmus [Unknown]
  - Arthralgia [Unknown]
  - Fatigue [Unknown]
  - Flatulence [Unknown]

NARRATIVE: CASE EVENT DATE: 20250303
